FAERS Safety Report 7238834-0 (Version None)
Quarter: 2011Q1

REPORT INFORMATION
  Report Type: 
  Country: None (occurrence: None)
  Receive Date: 20110121
  Receipt Date: 20110112
  Transmission Date: 20110831
  Serious: Yes (Hospitalization)
  Sender: FDA-Public Use
  Company Number: PHHO2010FR12185

PATIENT
  Sex: Male
  Weight: 64 kg

DRUGS (3)
  1. MYCOPHENOLIC ACID [Suspect]
     Dosage: 1080MG/DAY
     Route: 048
  2. MYCOPHENOLIC ACID [Suspect]
     Indication: RENAL TRANSPLANT
     Dosage: 1440MG/DAY
     Route: 048
     Dates: start: 20100213
  3. NEORAL [Suspect]
     Indication: RENAL TRANSPLANT
     Dosage: 225MG/DAY
     Route: 048
     Dates: start: 20100213

REACTIONS (2)
  - BLOOD CREATININE INCREASED [None]
  - PANCYTOPENIA [None]
